FAERS Safety Report 7446035-6 (Version None)
Quarter: 2011Q2

REPORT INFORMATION
  Report Type: 
  Country: None (occurrence: None)
  Receive Date: 20110429
  Receipt Date: 20110425
  Transmission Date: 20111010
  Serious: Yes (Life-Threatening)
  Sender: FDA-Public Use
  Company Number: US-GENZYME-CLOF-1001331

PATIENT
  Sex: Female
  Weight: 58.8 kg

DRUGS (76)
  1. BENADRYL [Concomitant]
     Indication: PREMEDICATION
     Dosage: 50 MG, PRN
     Route: 042
     Dates: start: 20101117, end: 20101231
  2. EUCERIN [Concomitant]
     Indication: DRY SKIN
     Dosage: UNK
     Route: 061
     Dates: start: 20101117, end: 20101223
  3. MORPHINE [Concomitant]
     Indication: PAIN
     Dosage: 2 MG, PRN
     Dates: start: 20101112, end: 20101223
  4. PROMETHAZINE [Concomitant]
     Indication: NAUSEA
     Dosage: 12.5 MG, UNK
     Route: 042
     Dates: start: 20101112, end: 20101122
  5. DEXMEDETOMIDINE [Concomitant]
     Indication: SEDATION
     Dosage: UNK
     Route: 042
     Dates: start: 20101212, end: 20101225
  6. DIAZEPAM [Concomitant]
     Dosage: 7 MG, UNK
     Route: 048
     Dates: start: 20101215
  7. HYDROMORPHONE [Concomitant]
     Indication: PAIN
     Dosage: 1.0 OTHER, UNK
     Route: 042
     Dates: start: 20101223, end: 20101231
  8. LIPIDS NOS [Concomitant]
     Indication: NUTRITIONAL SUPPORT
     Dosage: UNK
     Route: 042
     Dates: start: 20101122, end: 20101220
  9. ROBITUSSIN A-C [Concomitant]
     Indication: COUGH
     Dosage: 5 ML, PRN
     Route: 048
     Dates: start: 20101120, end: 20101123
  10. NORCO [Concomitant]
     Indication: PAIN
     Dosage: 325 MG, UNK
     Route: 048
     Dates: start: 20101114, end: 20101124
  11. ATIVAN [Concomitant]
     Indication: NAUSEA
     Dosage: 1 MG, PRN
     Route: 042
     Dates: start: 20101113, end: 20101222
  12. DEMEROL [Concomitant]
     Indication: CHILLS
     Dosage: 25 MG, PRN
     Route: 061
     Dates: start: 20101119, end: 20101119
  13. VERSED [Concomitant]
     Indication: SEDATION
     Dosage: 15 MG, UNK
     Route: 048
     Dates: start: 20101119, end: 20101119
  14. SOLUTIONS FOR PARENTERAL NUTRITION [Concomitant]
     Indication: MEDICAL DIET
     Dosage: 2160 ML, UNK
     Route: 042
     Dates: start: 20101122, end: 20101127
  15. METOCLOPRAMIDE [Concomitant]
     Dosage: 11.76 MG, UNK
     Route: 048
     Dates: start: 20101127, end: 20110103
  16. VECURONIUM BROMIDE [Concomitant]
     Indication: SEDATION
     Dosage: .05 OTHER, UNK
     Route: 042
     Dates: start: 20101125, end: 20101220
  17. CLONIDINE [Concomitant]
     Indication: BLOOD PRESSURE MANAGEMENT
     Dosage: 0.1 MG, UNK
     Route: 062
     Dates: start: 20101201
  18. KETAMINE HCL [Concomitant]
     Indication: SEDATION
     Dosage: 117.6 MG, UNK
     Route: 042
     Dates: start: 20101224, end: 20101224
  19. MAGNESIUM SULFATE [Concomitant]
     Indication: HYPOMAGNESAEMIA
     Dosage: 1470 MG, UNK
     Route: 042
     Dates: start: 20101222, end: 20101222
  20. MILRINONE [Concomitant]
     Indication: ANGIOPATHY
     Dosage: UNK
     Route: 042
     Dates: start: 20101201, end: 20101206
  21. METHOTREXATE [Concomitant]
     Dosage: 15 MG, UNK
     Route: 037
     Dates: start: 20101227, end: 20101227
  22. METHOTREXATE [Suspect]
     Indication: ACUTE LYMPHOCYTIC LEUKAEMIA
     Dosage: 15 MG, ONCE
     Route: 037
     Dates: start: 20101110, end: 20101110
  23. SARNA [Concomitant]
     Indication: DRY SKIN
     Dosage: 0.5 %, PRN
     Route: 061
     Dates: start: 20101117, end: 20101117
  24. CLINDAMYCIN [Concomitant]
     Indication: ANTI-INFECTIVE THERAPY
     Dosage: 600 MG, UNK
     Route: 042
     Dates: start: 20101112, end: 20101116
  25. MICAFUNGIN [Concomitant]
     Dosage: 100 MG, UNK
     Route: 042
     Dates: start: 20101126, end: 20101223
  26. METOCLOPRAMIDE [Concomitant]
     Indication: CONSTIPATION PROPHYLAXIS
     Dosage: 2.88 MG, UNK
     Route: 042
     Dates: start: 20101127, end: 20110103
  27. DIAZEPAM [Concomitant]
     Indication: SEDATION
     Dosage: 7 MG, UNK
     Route: 042
     Dates: start: 20101215
  28. METHADONE [Concomitant]
     Indication: SEDATION
     Dosage: 10 MG, UNK
     Route: 042
     Dates: start: 20101223
  29. NICARDIPINE HCL [Concomitant]
     Indication: HYPERTENSION
     Dosage: UNK
     Route: 042
     Dates: start: 20101212, end: 20101217
  30. LEUCOVORIN CALCIUM [Concomitant]
     Indication: ACUTE LYMPHOCYTIC LEUKAEMIA
     Dosage: 8.25 MG, UNK
     Route: 042
     Dates: start: 20101229, end: 20101230
  31. ETOPOSIDE [Suspect]
     Indication: ACUTE LYMPHOCYTIC LEUKAEMIA
     Dosage: 165 MG, QDX5
     Route: 042
     Dates: start: 20101111, end: 20101115
  32. NEURONTIN [Concomitant]
     Indication: PAIN
     Dosage: 100 MG, UNK
     Route: 048
     Dates: start: 20101110, end: 20101123
  33. BACITRACIN [Concomitant]
     Indication: WOUND
     Dosage: UNK
     Route: 061
     Dates: start: 20101207, end: 20101219
  34. PHENOBARBITAL TAB [Concomitant]
     Indication: SEDATION
     Dosage: UNK
     Route: 042
     Dates: start: 20101201, end: 20101225
  35. EMLA [Concomitant]
     Indication: PAIN
     Dosage: 2.50 %, UNK
     Route: 061
     Dates: start: 20101112, end: 20101124
  36. CLARITIN [Concomitant]
     Indication: MULTIPLE ALLERGIES
     Dosage: 10 MG, UNK
     Route: 048
     Dates: start: 20101116, end: 20101123
  37. ZOFRAN [Concomitant]
     Dosage: 24 MG, UNK
     Route: 042
     Dates: start: 20101111, end: 20101119
  38. FORTAZ [Concomitant]
     Indication: ANTI-INFECTIVE THERAPY
     Dosage: 2000 MG, UNK
     Route: 042
     Dates: start: 20101111, end: 20101117
  39. FENTANYL [Concomitant]
     Indication: SEDATION
     Dosage: 100 OTHER, UNK
     Route: 062
     Dates: start: 20101217, end: 20101221
  40. LORAZEPAM [Concomitant]
     Indication: SEDATION
     Dosage: .15 OTHER, UNK
     Route: 042
     Dates: start: 20101126, end: 20101211
  41. AMINOCAPROIC ACID [Concomitant]
     Indication: GASTROINTESTINAL HAEMORRHAGE
     Dosage: 5000 MG, UNK
     Route: 042
     Dates: start: 20101212, end: 20101212
  42. CALCIUM CHLORIDE [Concomitant]
     Indication: HYPOCALCAEMIA
     Dosage: 7 OTHER, UNK
     Route: 042
     Dates: start: 20101129, end: 20101220
  43. GLUCOSE OXIDASE [Concomitant]
     Indication: DENTAL DISORDER PROPHYLAXIS
     Dosage: 10 ML, UNK
     Route: 048
     Dates: start: 20101201
  44. ROCURONIUM [Concomitant]
     Indication: SEDATION
     Dosage: 60 MG, UNK
     Route: 042
     Dates: start: 20101125, end: 20101225
  45. PHENERGAN HCL [Concomitant]
     Indication: NAUSEA
     Dosage: 21.5 MG, PRN
     Route: 042
     Dates: start: 20101112
  46. BACTRIM [Concomitant]
     Indication: PROPHYLAXIS
     Dosage: 160 MG, UNK
     Route: 048
     Dates: start: 20101113
  47. LASIX [Concomitant]
     Indication: DIURETIC THERAPY
     Dosage: 40 MG, PRN
     Route: 042
     Dates: start: 20101113
  48. MICAFUNGIN [Concomitant]
     Indication: ANTIFUNGAL TREATMENT
     Dosage: 50 MG, UNK
     Route: 042
     Dates: start: 20101116, end: 20101117
  49. ZOFRAN [Concomitant]
     Dosage: 24 MG, UNK
     Route: 042
     Dates: start: 20101111, end: 20101120
  50. POSACONAZOLE [Concomitant]
     Indication: ANTIFUNGAL TREATMENT
     Dosage: 200 MG, UNK
     Route: 048
     Dates: start: 20101116, end: 20101116
  51. FUROSEMIDE [Concomitant]
     Indication: DIURETIC THERAPY
     Dosage: 40 MG, UNK
     Route: 042
     Dates: start: 20101113, end: 20101129
  52. LORAZEPAM [Concomitant]
     Indication: AGITATION
  53. CIPROFLOXACIN [Concomitant]
     Dosage: 400 MG, UNK
     Route: 048
     Dates: start: 20101223, end: 20101227
  54. D5LRS [Concomitant]
     Indication: FLUID REPLACEMENT
     Dosage: UNK
     Route: 042
     Dates: start: 20101110, end: 20101229
  55. ESOMEPRAZOLE [Concomitant]
     Indication: PROPHYLAXIS
     Dosage: 40 MG, UNK
     Route: 042
     Dates: start: 20101129, end: 20110101
  56. HYDRALAZINE HCL [Concomitant]
     Indication: HYPERTENSION
     Dosage: 20 MG, UNK
     Route: 042
     Dates: start: 20101201, end: 20101202
  57. REGULAR INSULIN [Concomitant]
     Indication: PROPHYLAXIS
     Dosage: UNK
     Route: 042
     Dates: start: 20101126, end: 20101210
  58. POTASSIUM CHLORIDE [Concomitant]
     Indication: HYPOKALAEMIA
     Dosage: UNK
     Route: 042
     Dates: start: 20101129, end: 20101204
  59. CALMOSEPTINE [Concomitant]
     Indication: DRY SKIN
     Dosage: UNK
     Route: 061
     Dates: start: 20101114, end: 20101121
  60. ZOFRAN [Concomitant]
     Indication: NAUSEA
     Dosage: 8 MG, PRN
     Route: 042
     Dates: start: 20101120, end: 20101214
  61. MIRALAX [Concomitant]
     Indication: CONSTIPATION
     Dosage: 17 G, PRN
     Route: 048
     Dates: start: 20101112, end: 20101226
  62. LEUCOVORIN CALCIUM [Concomitant]
     Indication: PROPHYLAXIS
     Dosage: 7.5 MG, UNK
     Route: 048
     Dates: start: 20101112, end: 20101113
  63. ALLOPURINOL [Concomitant]
     Indication: PROPHYLAXIS
     Dosage: 200 MG, UNK
     Route: 048
     Dates: start: 20101110, end: 20101113
  64. ENOXAPARIN [Concomitant]
     Indication: ANTICOAGULANT THERAPY
     Dosage: 90 MG, UNK
     Route: 058
     Dates: start: 20101222
  65. EPOETIN ALFA [Concomitant]
     Indication: ANAEMIA
     Dosage: 8820 U, UNK
     Route: 058
     Dates: start: 20101128, end: 20101128
  66. ESOMEPRAZOLE [Concomitant]
     Dosage: 40 MG, UNK
     Route: 048
     Dates: start: 20101129, end: 20110101
  67. RISPERIDONE [Concomitant]
     Indication: AGITATION
     Dosage: 1 MG, UNK
     Route: 048
     Dates: start: 20101226, end: 20101226
  68. CLOFARABINE [Suspect]
     Indication: ACUTE LYMPHOCYTIC LEUKAEMIA
     Dosage: 66 MG, QDX5
     Route: 042
     Dates: start: 20101111, end: 20101115
  69. CYCLOPHOSPHAMIDE [Suspect]
     Indication: ACUTE LYMPHOCYTIC LEUKAEMIA
     Dosage: 725 MG, QDX5
     Route: 042
     Dates: start: 20101111, end: 20101115
  70. SOLU-CORTEF [Concomitant]
     Indication: PREMEDICATION
     Dosage: 165 MG, UNK
     Route: 042
     Dates: start: 20101111, end: 20101115
  71. MIDAZOLAM [Concomitant]
     Indication: AGITATION
     Dosage: 2 MG, PRN
     Route: 042
     Dates: start: 20101124, end: 20101218
  72. FENTANYL [Concomitant]
     Indication: PAIN
     Dosage: 2 MCG/KG/HR, UNK
     Route: 042
     Dates: start: 20101126, end: 20101205
  73. CIPROFLOXACIN [Concomitant]
     Indication: ANTI-INFECTIVE THERAPY
     Dosage: 400 MG, UNK
     Route: 042
     Dates: start: 20101223, end: 20101227
  74. ESTRADIOL TRANSDERMAL [Concomitant]
     Indication: MENORRHAGIA
     Dosage: .025 MG, UNK
     Route: 062
     Dates: start: 20101202, end: 20101221
  75. REGULAR INSULIN [Concomitant]
  76. METHADONE [Concomitant]
     Dosage: 10 MG, UNK
     Route: 048
     Dates: start: 20101223

REACTIONS (6)
  - HYPOTENSION [None]
  - PNEUMONITIS [None]
  - PNEUMONIA RESPIRATORY SYNCYTIAL VIRAL [None]
  - BLOOD BILIRUBIN INCREASED [None]
  - ACUTE RESPIRATORY DISTRESS SYNDROME [None]
  - HYPERNATRAEMIA [None]
